FAERS Safety Report 6876712-7 (Version None)
Quarter: 2010Q3

REPORT INFORMATION
  Report Type: 
  Country: None (occurrence: None)
  Receive Date: 20100727
  Receipt Date: 20100715
  Transmission Date: 20110219
  Serious: Yes (Hospitalization, Disabling, Other)
  Sender: FDA-Public Use
  Company Number: US-ROCHE-419582

PATIENT
  Sex: Male
  Weight: 86.2 kg

DRUGS (1)
  1. ACCUTANE [Suspect]
     Indication: ACNE
     Route: 048
     Dates: start: 19820801, end: 19830401

REACTIONS (13)
  - BLOOD TRIGLYCERIDES INCREASED [None]
  - CALCULUS URETERIC [None]
  - COLITIS [None]
  - COLITIS ULCERATIVE [None]
  - DIVERTICULITIS [None]
  - GASTROINTESTINAL DISORDER [None]
  - HYDRONEPHROSIS [None]
  - INFLAMMATORY BOWEL DISEASE [None]
  - INTESTINAL HAEMORRHAGE [None]
  - IRRITABLE BOWEL SYNDROME [None]
  - MULTI-ORGAN DISORDER [None]
  - NEPHROLITHIASIS [None]
  - TENOSYNOVITIS [None]
